FAERS Safety Report 5588068-0 (Version None)
Quarter: 2008Q1

REPORT INFORMATION
  Report Type: 
  Country: None (occurrence: None)
  Receive Date: 20080111
  Receipt Date: 20071211
  Transmission Date: 20080703
  Serious: No
  Sender: FDA-Public Use
  Company Number: US-BAYER-200716087NA

PATIENT
  Age: 74 Year
  Sex: Male

DRUGS (4)
  1. LEVITRA [Suspect]
     Indication: ERECTILE DYSFUNCTION
     Dosage: TOTAL DAILY DOSE: 10 MG  UNIT DOSE: 10 MG
     Route: 048
     Dates: start: 20071115, end: 20071115
  2. LEVITRA [Suspect]
     Dosage: TOTAL DAILY DOSE: 10 MG  UNIT DOSE: 10 MG
     Route: 048
     Dates: start: 20071210, end: 20071210
  3. FLOMAX [Concomitant]
     Dates: start: 20070601
  4. NEXIUM [Concomitant]
     Dates: start: 20071101

REACTIONS (1)
  - DRUG INEFFECTIVE [None]
